FAERS Safety Report 20128173 (Version 1)
Quarter: 2021Q4

REPORT INFORMATION
  Report Type: Spontaneous
  Country: JP (occurrence: JP)
  Receive Date: 20211129
  Receipt Date: 20211129
  Transmission Date: 20220303
  Serious: Yes (Other)
  Sender: FDA-Public Use
  Company Number: JP-SUN PHARMACEUTICAL INDUSTRIES LTD-2021RR-318714

PATIENT
  Age: 54 Year
  Sex: Male
  Weight: 56 kg

DRUGS (5)
  1. ASPIRIN [Suspect]
     Active Substance: ASPIRIN
     Indication: Thrombosis
     Dosage: 100 MILLIGRAM, DAILY
     Route: 065
  2. ASPIRIN [Suspect]
     Active Substance: ASPIRIN
     Dosage: 200 MILLIGRAM
     Route: 065
  3. CLOPIDOGREL [Suspect]
     Active Substance: CLOPIDOGREL BISULFATE
     Indication: Thrombosis
     Dosage: 75 MILLIGRAM, DAILY
     Route: 065
  4. CLOPIDOGREL [Suspect]
     Active Substance: CLOPIDOGREL BISULFATE
     Dosage: 300 MILLIGRAM
     Route: 065
  5. WARFARIN [Suspect]
     Active Substance: WARFARIN
     Indication: Thrombosis
     Dosage: 3.5 MILLIGRAM, DAILY
     Route: 065

REACTIONS (2)
  - Vascular stent thrombosis [Recovering/Resolving]
  - Disease recurrence [Recovering/Resolving]
